FAERS Safety Report 8389501-1 (Version None)
Quarter: 2012Q2

REPORT INFORMATION
  Report Type: 
  Country: None (occurrence: None)
  Receive Date: 20120528
  Receipt Date: 20120511
  Transmission Date: 20120825
  Serious: No
  Sender: FDA-Public Use
  Company Number: US-BAYER-2012-047381

PATIENT
  Age: 87 Year
  Sex: Female
  Weight: 48 kg

DRUGS (8)
  1. METOPROLOL [Concomitant]
  2. SYNTHROID [Concomitant]
  3. CENTRUM [Concomitant]
  4. CALCIUM [Concomitant]
  5. NAPROXEN SODIUM [Suspect]
     Indication: ARTHRALGIA
     Dosage: 2 DF, QD
     Route: 048
     Dates: start: 20120101, end: 20120101
  6. VITAMIN D [Concomitant]
  7. ATIVAN [Concomitant]
  8. ALDACTONE [Concomitant]

REACTIONS (1)
  - THROAT IRRITATION [None]
